FAERS Safety Report 8448517-7 (Version None)
Quarter: 2012Q2

REPORT INFORMATION
  Report Type: 
  Country: None (occurrence: None)
  Receive Date: 20120619
  Receipt Date: 20120614
  Transmission Date: 20120825
  Serious: No
  Sender: FDA-Public Use
  Company Number: US-PFIZER INC-2012144208

PATIENT
  Sex: Female
  Weight: 72.562 kg

DRUGS (6)
  1. ADVAIR DISKUS 100/50 [Concomitant]
     Indication: ASTHMA
     Dosage: 500/50 UG, 2X/DAY
     Dates: start: 20080101
  2. SPIRIVA [Concomitant]
     Indication: ASTHMA
     Dosage: UNK, DAILY
     Dates: start: 20080101
  3. ALBUTEROL SULATE [Concomitant]
     Indication: ASTHMA
     Dosage: 17 G, AS NEEDED
     Dates: start: 20080101
  4. EFFEXOR XR [Suspect]
     Dosage: 150 MG, DAILY
     Dates: start: 20110701, end: 20120612
  5. SINGULAIR [Concomitant]
     Indication: ASTHMA
     Dosage: 10 MG, DAILY
     Dates: start: 20080101
  6. EFFEXOR XR [Suspect]
     Indication: ANXIETY
     Dosage: 150 MG, DAILY
     Dates: start: 20080301, end: 20080101

REACTIONS (3)
  - TREMOR [None]
  - HEADACHE [None]
  - WEIGHT INCREASED [None]
